FAERS Safety Report 14454134 (Version 3)
Quarter: 2018Q3

REPORT INFORMATION
  Report Type: Spontaneous
  Country: CH (occurrence: CH)
  Receive Date: 20180129
  Receipt Date: 20180807
  Transmission Date: 20181010
  Serious: Yes (Life-Threatening)
  Sender: FDA-Public Use
  Company Number: CH-PFIZER INC-2018035781

PATIENT
  Age: 18 Month
  Sex: Male

DRUGS (7)
  1. NYSTATINE [Concomitant]
     Dosage: UNK
     Dates: start: 20171228
  2. CLEXANE [Concomitant]
     Active Substance: ENOXAPARIN SODIUM
     Dosage: UNK
     Dates: start: 20171128
  3. TARGOCID [Suspect]
     Active Substance: TEICOPLANIN
     Dosage: 48 MG (6.967 MG/KG), 1X/DAY
     Route: 041
     Dates: start: 20171129, end: 20171219
  4. REFOBACIN [Suspect]
     Active Substance: GENTAMICIN SULFATE
     Dosage: 98 MG (14.24 MG/KG) OVER 30 MIN, 1X/DAY
     Route: 041
     Dates: start: 20171121, end: 20171219
  5. ALDACTONE [Suspect]
     Active Substance: SPIRONOLACTONE
     Dosage: 7 MG, 2X/DAY
     Route: 048
     Dates: start: 20171127
  6. FUROSEMIDE. [Interacting]
     Active Substance: FUROSEMIDE
     Dosage: 7 MG (0.992MG/KG), 3X/DAY
     Route: 048
     Dates: start: 20171127
  7. CHOLECALCIFEROL [Concomitant]
     Active Substance: CHOLECALCIFEROL
     Dosage: UNK

REACTIONS (2)
  - Acute kidney injury [Recovered/Resolved]
  - Drug interaction [Unknown]

NARRATIVE: CASE EVENT DATE: 20171219
